FAERS Safety Report 9721936 (Version 2)
Quarter: 2013Q4

REPORT INFORMATION
  Report Type: Spontaneous
  Country: AU (occurrence: AU)
  Receive Date: 20131202
  Receipt Date: 20131211
  Transmission Date: 20140711
  Serious: No
  Sender: FDA-Public Use
  Company Number: AU-AMGEN-AUSSP2013083177

PATIENT
  Age: 84 Year
  Sex: Female

DRUGS (1)
  1. PROLIA [Suspect]
     Indication: OSTEOPOROSIS POSTMENOPAUSAL
     Dosage: UNK
     Route: 065
     Dates: start: 20130828

REACTIONS (3)
  - Musculoskeletal stiffness [Not Recovered/Not Resolved]
  - Malaise [Unknown]
  - Musculoskeletal pain [Unknown]
